FAERS Safety Report 7263042-7 (Version None)
Quarter: 2011Q1

REPORT INFORMATION
  Report Type: 
  Country: None (occurrence: None)
  Receive Date: 20110130
  Receipt Date: 20100923
  Transmission Date: 20110831
  Serious: No
  Sender: FDA-Public Use
  Company Number: US-ABBOTT-10P-163-0672809-00

PATIENT
  Age: 40 Year
  Sex: Female

DRUGS (6)
  1. PREDNISONE [Concomitant]
     Indication: CROHN'S DISEASE
  2. HUMIRA [Suspect]
     Indication: CROHN'S DISEASE
     Dates: start: 20100701
  3. NYSTATIN [Concomitant]
     Indication: PRODUCT USED FOR UNKNOWN INDICATION
     Dates: start: 20100907
  4. ASACOL [Concomitant]
     Indication: CROHN'S DISEASE
     Dosage: 3 PILLS THREE TIMES A DAY
  5. FOLIC ACID [Concomitant]
     Indication: CROHN'S DISEASE
  6. CANASA [Concomitant]
     Indication: CROHN'S DISEASE

REACTIONS (3)
  - THROAT IRRITATION [None]
  - LOCALISED OEDEMA [None]
  - CANDIDIASIS [None]
